FAERS Safety Report 10186915 (Version 2)
Quarter: 2014Q2

REPORT INFORMATION
  Report Type: Not Available
  Country: FR (occurrence: FR)
  Receive Date: 20140522
  Receipt Date: 20140522
  Transmission Date: 20141212
  Serious: Yes (Other)
  Sender: FDA-Public Use
  Company Number: FR-BEH-2013038696

PATIENT
  Age: 10 Year
  Sex: Male
  Weight: 29 kg

DRUGS (26)
  1. HIZENTRA [Suspect]
     Dates: start: 20120411
  2. HIZENTRA [Suspect]
     Dates: start: 20130504
  3. HIZENTRA [Suspect]
     Dates: start: 20120601
  4. HIZENTRA [Suspect]
     Dates: start: 20120703
  5. HIZENTRA [Suspect]
     Dates: start: 20130906
  6. HIZENTRA [Suspect]
     Dates: start: 20121002
  7. HIZENTRA [Suspect]
     Dates: start: 20131029
  8. HIZENTRA [Suspect]
     Dates: start: 20121127
  9. HIZENTRA [Suspect]
     Dates: start: 20121221
  10. HIZENTRA [Suspect]
     Dates: start: 20130122
  11. HIZENTRA [Suspect]
     Dates: start: 20130225
  12. HIZENTRA [Suspect]
     Dates: start: 20130319
  13. HIZENTRA [Suspect]
     Dates: start: 20130416
  14. HIZENTRA [Suspect]
     Dates: start: 20130514
  15. HIZENTRA [Suspect]
     Dates: start: 20130514
  16. HIZENTRA [Suspect]
     Dates: start: 20130516
  17. HIZENTRA [Suspect]
     Dates: start: 20130516
  18. HIZENTRA [Suspect]
     Dates: start: 20130610
  19. HIZENTRA [Suspect]
     Indication: SELECTIVE IGG SUBCLASS DEFICIENCY
     Dates: start: 20130610
  20. HIZENTRA [Suspect]
     Dates: start: 20130701
  21. HIZENTRA [Suspect]
     Dates: start: 20130701
  22. HIZENTRA [Suspect]
     Dates: start: 20130905
  23. HIZENTRA [Suspect]
     Dates: start: 20130905
  24. HIZENTRA [Suspect]
     Dates: start: 20130920
  25. HIZENTRA [Suspect]
     Dates: start: 20130920
  26. SYMBICORD [Concomitant]
     Dosage: 200/6 MICROGRAMS PER DOSE
     Route: 055

REACTIONS (13)
  - Injection site reaction [Recovered/Resolved]
  - Pruritus [Recovered/Resolved]
  - Injection site pain [Recovered/Resolved]
  - Crying [Unknown]
  - Swelling [Unknown]
  - Injection site induration [Recovered/Resolved]
  - Abdominal distension [Unknown]
  - Erythema [Recovered/Resolved]
  - Pruritus [Recovered/Resolved]
  - Erythema [Recovered/Resolved]
  - Pain [Recovered/Resolved]
  - Induration [Recovered/Resolved]
  - Erythema [Recovered/Resolved]
